FAERS Safety Report 22339785 (Version 2)
Quarter: 2023Q2

REPORT INFORMATION
  Report Type: Spontaneous
  Country: US (occurrence: US)
  Receive Date: 20230518
  Receipt Date: 20230601
  Transmission Date: 20230721
  Serious: Yes (Hospitalization)
  Sender: FDA-Public Use
  Company Number: US-TEVA-2023-US-2886704

PATIENT
  Age: 76 Year
  Sex: Female

DRUGS (1)
  1. LEVETIRACETAM [Suspect]
     Active Substance: LEVETIRACETAM
     Indication: Partial seizures
     Dosage: 3000 MILLIGRAM DAILY; 1500 MG TWICE DAILY
     Route: 065

REACTIONS (2)
  - Liver injury [Recovering/Resolving]
  - Autoimmune hepatitis [Recovering/Resolving]
